FAERS Safety Report 22117468 (Version 1)
Quarter: 2023Q1

REPORT INFORMATION
  Report Type: Spontaneous
  Country: CN (occurrence: CN)
  Receive Date: 20230321
  Receipt Date: 20230321
  Transmission Date: 20230418
  Serious: Yes (Other)
  Sender: FDA-Public Use
  Company Number: None

PATIENT
  Age: 39 Year
  Sex: Female
  Weight: 72 kg

DRUGS (2)
  1. CYCLOPHOSPHAMIDE [Suspect]
     Active Substance: CYCLOPHOSPHAMIDE
     Indication: Breast cancer female
     Dosage: AT 9:10, 1 G, QD, DILUTED WITH 100 ML OF 0.9% SODIUM CHLORIDE
     Route: 041
     Dates: start: 20230303, end: 20230303
  2. SODIUM CHLORIDE [Suspect]
     Active Substance: SODIUM CHLORIDE
     Indication: Medication dilution
     Dosage: AT 09:10, CONCENTRATION: 0.9 %, 100 ML, QD USED TO DILUTE 1 G CYCLOPHOSPHAMIDE
     Route: 041
     Dates: start: 20230303, end: 20230303

REACTIONS (2)
  - Myelosuppression [Recovering/Resolving]
  - Full blood count decreased [Recovering/Resolving]

NARRATIVE: CASE EVENT DATE: 20230304
